FAERS Safety Report 5247544-0 (Version None)
Quarter: 2007Q1

REPORT INFORMATION
  Report Type: 
  Country: None (occurrence: None)
  Receive Date: 20070227
  Receipt Date: 20070215
  Transmission Date: 20070707
  Serious: Yes (Hospitalization)
  Sender: FDA-Public Use
  Company Number: PHHO2007JP03341

PATIENT
  Age: 73 Year
  Sex: Female

DRUGS (5)
  1. DIOVAN [Suspect]
     Indication: HYPERTENSION
     Dosage: 80 MG DAILY
     Route: 048
     Dates: start: 20030214, end: 20030619
  2. DIOVAN [Suspect]
     Dosage: 160 MG DAILY
     Route: 048
     Dates: start: 20030620, end: 20060207
  3. BEZATOL - SLOW RELEASE [Concomitant]
     Indication: HYPERCHOLESTEROLAEMIA
     Dosage: 200 MG, UNK
     Dates: end: 20060207
  4. BUFFERIN [Concomitant]
     Indication: ARRHYTHMIA
     Dosage: 100 MG, UNK
  5. ASPIRIN [Concomitant]
     Indication: ARRHYTHMIA
     Dosage: 100 MG, UNK
     Dates: end: 20060207

REACTIONS (5)
  - ANGINA PECTORIS [None]
  - CHEST PAIN [None]
  - CORONARY ARTERY STENOSIS [None]
  - DYSPNOEA [None]
  - STRESS CARDIOMYOPATHY [None]
